FAERS Safety Report 17546077 (Version 1)
Quarter: 2020Q1

REPORT INFORMATION
  Report Type: Spontaneous
  Country: US (occurrence: US)
  Receive Date: 20200316
  Receipt Date: 20200316
  Transmission Date: 20200409
  Serious: No
  Sender: FDA-Public Use
  Company Number: None

PATIENT
  Age: 68 Year
  Sex: Female
  Weight: 58.95 kg

DRUGS (9)
  1. LISINOPRIL. [Concomitant]
     Active Substance: LISINOPRIL
  2. TEMOZOLOMIDE. [Suspect]
     Active Substance: TEMOZOLOMIDE
     Indication: BRAIN NEOPLASM MALIGNANT
     Dates: start: 20190921, end: 20200316
  3. CITALOPRAM [Concomitant]
     Active Substance: CITALOPRAM HYDROBROMIDE
  4. ASPIRIN. [Concomitant]
     Active Substance: ASPIRIN
  5. CALCIUM MAGNESIUM 750 [Concomitant]
  6. FISH OIL OMEGA 3 [Concomitant]
     Active Substance: FISH OIL
  7. HYDROCHLOROTHIAZIDE 12.5MG [Concomitant]
     Active Substance: HYDROCHLOROTHIAZIDE
  8. LORAZEPAM 0.5MG [Concomitant]
     Active Substance: LORAZEPAM
  9. PRAVASTATIN. [Concomitant]
     Active Substance: PRAVASTATIN

REACTIONS (1)
  - Disease progression [None]

NARRATIVE: CASE EVENT DATE: 20200316
